FAERS Safety Report 18960640 (Version 2)
Quarter: 2021Q1

REPORT INFORMATION
  Report Type: Spontaneous
  Country: FR (occurrence: FR)
  Receive Date: 20210303
  Receipt Date: 20210312
  Transmission Date: 20210420
  Serious: Yes (Hospitalization, Other)
  Sender: FDA-Public Use
  Company Number: FR-SUN PHARMACEUTICAL INDUSTRIES LTD-2021RR-283724

PATIENT
  Age: 33 Year
  Sex: Female

DRUGS (8)
  1. LOPINAVIR/RITONAVIR [Interacting]
     Active Substance: LOPINAVIR\RITONAVIR
     Indication: PROPHYLAXIS
     Dosage: LOPINAVIR 200MG AND RITONAVIR 50MG, TWICE A DAY
     Route: 065
  2. AMLODIPINE [Suspect]
     Active Substance: AMLODIPINE BESYLATE
     Indication: VASODILATATION
     Route: 048
  3. ZIDOVUDINE. [Concomitant]
     Active Substance: ZIDOVUDINE
     Indication: PROPHYLAXIS AGAINST HIV INFECTION
     Dosage: UNK
     Route: 065
  4. LAMIVUDINE. [Concomitant]
     Active Substance: LAMIVUDINE
     Indication: PROPHYLAXIS AGAINST HIV INFECTION
     Dosage: 150 MILLIGRAMS, UNK
     Route: 065
  5. ISOSORBIDE?DINITRATE [Suspect]
     Active Substance: ISOSORBIDE DINITRATE
     Indication: VASODILATATION
     Dosage: UNK
     Route: 042
  6. LITHIUM CARBONATE. [Concomitant]
     Active Substance: LITHIUM CARBONATE
     Indication: BIPOLAR DISORDER
     Dosage: 400 MILLIGRAM, DAILY
     Route: 065
  7. DIHYDROERGOTAMINE [Interacting]
     Active Substance: DIHYDROERGOTAMINE
     Indication: ORTHOSTATIC HYPOTENSION
     Dosage: 5 MILLIGRAM, DAILY
     Route: 065
  8. QUETIAPINE FUMARATE. [Concomitant]
     Active Substance: QUETIAPINE FUMARATE
     Indication: BIPOLAR DISORDER
     Dosage: 50 MILLIGRAM, DAILY
     Route: 065

REACTIONS (3)
  - Drug interaction [Unknown]
  - Ergot poisoning [Recovered/Resolved]
  - Condition aggravated [Recovered/Resolved]
